FAERS Safety Report 9045773 (Version 1)
Quarter: 2013Q1

REPORT INFORMATION
  Report Type: Report from Study
  Country: US (occurrence: US)
  Receive Date: 20130201
  Receipt Date: 20130201
  Transmission Date: 20140127
  Serious: No
  Sender: FDA-Public Use
  Company Number: US-ABBOTT-12P-163-1017215-00

PATIENT
  Age: 68 Year
  Sex: Female

DRUGS (18)
  1. HUMIRA [Suspect]
     Indication: PSORIASIS
     Dates: start: 201211
  2. HUMIRA [Suspect]
     Dates: start: 20121201
  3. METFORMIN [Concomitant]
     Indication: DIABETES MELLITUS
  4. ALENDRONATE [Concomitant]
     Indication: OSTEOPOROSIS
     Dosage: WEEKLY
  5. LEFLUNOMIDE [Concomitant]
     Indication: BONE DISORDER
     Dosage: EVERY WEDNESDAY
  6. FOLIC ACID [Concomitant]
     Indication: PRODUCT USED FOR UNKNOWN INDICATION
  7. ATENOLOL [Concomitant]
     Indication: HYPERTENSION
  8. PREDNISONE [Concomitant]
     Indication: PRODUCT USED FOR UNKNOWN INDICATION
  9. OMEPRAZOLE [Concomitant]
     Indication: PRODUCT USED FOR UNKNOWN INDICATION
  10. DOXAZOSINE [Concomitant]
     Indication: INSOMNIA
     Dosage: AT BEDTIME
  11. POTASSIUM [Concomitant]
     Indication: PRODUCT USED FOR UNKNOWN INDICATION
  12. LEVOTHYROXIN [Concomitant]
     Indication: THYROID DISORDER
  13. HYDROXYZINE [Concomitant]
     Indication: PRURITUS
     Dosage: AS NEEDED
  14. FUROSEMIDE [Concomitant]
     Indication: FLUID RETENTION
  15. ASPIRIN [Concomitant]
     Indication: CARDIAC DISORDER
  16. FISH OIL [Concomitant]
     Indication: PRODUCT USED FOR UNKNOWN INDICATION
  17. VIT D3 [Concomitant]
     Indication: PRODUCT USED FOR UNKNOWN INDICATION
  18. MULTIVITAMIN [Concomitant]
     Indication: PRODUCT USED FOR UNKNOWN INDICATION
     Dosage: DAILY

REACTIONS (2)
  - Staphylococcal infection [Recovering/Resolving]
  - Injection site pain [Recovered/Resolved]
